FAERS Safety Report 5160773-X (Version None)
Quarter: 2006Q4

REPORT INFORMATION
  Report Type: 
  Country: None (occurrence: None)
  Receive Date: 20060919
  Receipt Date: 20060714
  Transmission Date: 20070319
  Serious: No
  Sender: FDA-Public Use
  Company Number: BDI-008418

PATIENT
  Age: 50 Year
  Sex: Female
  Weight: 82.73 kg

DRUGS (4)
  1. MULTIHANCE [Suspect]
     Indication: COGNITIVE DISORDER
     Dosage: 18 ML ONCE IV
     Route: 042
     Dates: start: 20060620, end: 20060620
  2. MULTIHANCE [Suspect]
     Indication: NUCLEAR MAGNETIC RESONANCE IMAGING BRAIN
     Dosage: 18 ML ONCE IV
     Route: 042
     Dates: start: 20060620, end: 20060620
  3. CYCLOPHOSPHAMIDE [Concomitant]
  4. PREDNISONE TAB [Concomitant]

REACTIONS (3)
  - ERYTHEMA [None]
  - OEDEMA PERIPHERAL [None]
  - PAIN IN EXTREMITY [None]
